FAERS Safety Report 14953239 (Version 1)
Quarter: 2018Q2

REPORT INFORMATION
  Report Type: Other
  Country: None (occurrence: FI)
  Receive Date: 20180530
  Receipt Date: 20180530
  Transmission Date: 20180711
  Serious: Yes (Congenital Anomaly)
  Sender: FDA-Public Use
  Company Number: FI-LABORATOIRE HRA PHARMA-2048685

PATIENT

DRUGS (1)
  1. ELLA [Suspect]
     Active Substance: ULIPRISTAL ACETATE
     Indication: EXPOSURE DURING PREGNANCY
     Route: 064
     Dates: start: 20160124, end: 20160124

REACTIONS (1)
  - Cleft lip and palate [Unknown]
